FAERS Safety Report 17261979 (Version 2)
Quarter: 2020Q1

REPORT INFORMATION
  Report Type: Spontaneous
  Country: US (occurrence: US)
  Receive Date: 20200113
  Receipt Date: 20200327
  Transmission Date: 20200409
  Serious: Yes (Other)
  Sender: FDA-Public Use
  Company Number: US-PFIZER INC-2020013532

PATIENT
  Age: 35 Year
  Sex: Male
  Weight: 183.67 kg

DRUGS (2)
  1. NEURONTIN [Concomitant]
     Active Substance: GABAPENTIN
     Indication: DIABETIC NEUROPATHY
     Dosage: 150 MG, 3X/DAY
     Dates: start: 2010, end: 2012
  2. LYRICA [Suspect]
     Active Substance: PREGABALIN
     Indication: DIABETIC NEUROPATHY
     Dosage: 100 MG, 3X/DAY
     Dates: start: 2010

REACTIONS (3)
  - Eye disorder [Recovered/Resolved]
  - Macular degeneration [Not Recovered/Not Resolved]
  - Vision blurred [Not Recovered/Not Resolved]

NARRATIVE: CASE EVENT DATE: 2012
